FAERS Safety Report 18590862 (Version 1)
Quarter: 2020Q4

REPORT INFORMATION
  Report Type: Spontaneous
  Country: US (occurrence: US)
  Receive Date: 20201208
  Receipt Date: 20201208
  Transmission Date: 20210114
  Serious: No
  Sender: FDA-Public Use
  Company Number: US-PFIZER INC-2020477434

PATIENT
  Sex: Female

DRUGS (3)
  1. LIPITOR [Suspect]
     Active Substance: ATORVASTATIN CALCIUM
     Dosage: UNK
  2. METFORMIN [Suspect]
     Active Substance: METFORMIN HYDROCHLORIDE
     Dosage: UNK
  3. LENVIMA [Concomitant]
     Active Substance: LENVATINIB
     Dosage: 14 MG, DAILY
     Dates: start: 20200925

REACTIONS (2)
  - Glycosylated haemoglobin increased [Unknown]
  - Blood cholesterol increased [Unknown]
